FAERS Safety Report 7734505-2 (Version None)
Quarter: 2011Q3

REPORT INFORMATION
  Report Type: 
  Country: None (occurrence: None)
  Receive Date: 20110907
  Receipt Date: 20110826
  Transmission Date: 20111222
  Serious: Yes (Hospitalization)
  Sender: FDA-Public Use
  Company Number: US-GLAXOSMITHKLINE-A0898573A

PATIENT
  Age: 73 Year
  Sex: Female

DRUGS (9)
  1. SINGULAIR [Concomitant]
  2. TRICOR [Concomitant]
  3. AVANDAMET [Suspect]
     Indication: TYPE 2 DIABETES MELLITUS
     Route: 048
     Dates: start: 20040621, end: 20060327
  4. NEXIUM [Concomitant]
  5. AVANDIA [Suspect]
     Indication: TYPE 2 DIABETES MELLITUS
     Dosage: 4MG PER DAY
     Route: 048
     Dates: start: 20040519, end: 20040621
  6. VALIUM [Concomitant]
  7. MAXZIDE [Concomitant]
  8. ALBUTEROL SULFATE AUTOHALER [Concomitant]
  9. ZYRTEC [Concomitant]

REACTIONS (2)
  - ACUTE CORONARY SYNDROME [None]
  - ARTERIOSCLEROSIS [None]
